FAERS Safety Report 7289397-5 (Version None)
Quarter: 2011Q1

REPORT INFORMATION
  Report Type: 
  Country: None (occurrence: None)
  Receive Date: 20110211
  Receipt Date: 20110204
  Transmission Date: 20110831
  Serious: Yes (Other)
  Sender: FDA-Public Use
  Company Number: FR-AMGEN-FRASP2011006762

PATIENT
  Age: 68 Year
  Sex: Male

DRUGS (1)
  1. NPLATE [Suspect]
     Indication: MYELODYSPLASTIC SYNDROME
     Dosage: 5 A?G/KG, QWK
     Dates: start: 20101102, end: 20110101

REACTIONS (2)
  - THERAPEUTIC RESPONSE DECREASED [None]
  - DIZZINESS [None]
